FAERS Safety Report 5275218-9 (Version None)
Quarter: 2007Q1

REPORT INFORMATION
  Report Type: 
  Country: None (occurrence: None)
  Receive Date: 20061219
  Receipt Date: 20060927
  Transmission Date: 20070707
  Serious: Yes (Life-Threatening, Hospitalization)
  Sender: FDA-Public Use
  Company Number: US-JNJFOC-20060305424

PATIENT
  Age: 21 Year
  Sex: Female
  Weight: 64.8644 kg

DRUGS (6)
  1. ORTHO EVRA [Suspect]
     Indication: DYSMENORRHOEA
     Dates: start: 20031029, end: 20041223
  2. ORTHO EVRA [Suspect]
     Indication: OFF LABEL USE
     Dates: start: 20031029, end: 20041223
  3. ORTHO EVRA [Suspect]
     Indication: OVARIAN CYST
     Dates: start: 20031029, end: 20041223
  4. BACTRIM DS [Concomitant]
  5. ULTRAM [Concomitant]
  6. ALBUTEROL [Concomitant]

REACTIONS (3)
  - ASTHMA [None]
  - PULMONARY EMBOLISM [None]
  - WEIGHT DECREASED [None]
